FAERS Safety Report 8855034 (Version 1)
Quarter: 2012Q4

REPORT INFORMATION
  Report Type: 
  Country: US (occurrence: US)
  Receive Date: 20121023
  Receipt Date: 20121023
  Transmission Date: 20130627
  Serious: Yes (Hospitalization)
  Sender: FDA-Public Use
  Company Number: US-MYLANLABS-2012S1021104

PATIENT
  Age: 58 Year
  Sex: Male

DRUGS (7)
  1. ALLOPURINOL TABLETS, USP [Suspect]
     Indication: ACCIDENTAL OVERDOSE
     Dosage: ingested approximately forty tablets of allopurinol
     Route: 065
  2. FUROSEMIDE [Concomitant]
     Route: 065
  3. CARVEDILOL [Concomitant]
     Route: 065
  4. SIMVASTATIN [Concomitant]
     Route: 065
  5. COLCHICINE [Concomitant]
     Route: 065
  6. CLOPIDOGREL [Concomitant]
     Route: 065
  7. ASPIRIN [Concomitant]
     Route: 065

REACTIONS (4)
  - Accidental overdose [Recovering/Resolving]
  - Renal failure acute [Recovering/Resolving]
  - Gastritis haemorrhagic [Unknown]
  - Medication error [Recovering/Resolving]
